FAERS Safety Report 5541649-2 (Version None)
Quarter: 2007Q4

REPORT INFORMATION
  Report Type: 
  Country: None (occurrence: None)
  Receive Date: 20071205
  Receipt Date: 20071205
  Transmission Date: 20080405
  Serious: Yes (Other)
  Sender: FDA-Public Use
  Company Number: None

PATIENT
  Age: 52 Year
  Sex: Male
  Weight: 86.1834 kg

DRUGS (5)
  1. SERTRALINE HCL [Suspect]
     Indication: DEPRESSION
     Dosage: 50MG  DAY  PO
     Route: 048
     Dates: start: 20061215, end: 20070901
  2. HYZAAR [Concomitant]
  3. ALPRAZOLAM [Concomitant]
  4. ACIPHEX [Concomitant]
  5. ASACOL [Concomitant]

REACTIONS (9)
  - NONSPECIFIC REACTION [None]
  - PARAESTHESIA [None]
  - PETECHIAE [None]
  - PHARMACEUTICAL PRODUCT COMPLAINT [None]
  - POROKERATOSIS [None]
  - SCHAMBERG'S DISEASE [None]
  - THERAPEUTIC RESPONSE UNEXPECTED WITH DRUG SUBSTITUTION [None]
  - URTICARIA [None]
  - VIRAL INFECTION [None]
